FAERS Safety Report 8479126-1 (Version None)
Quarter: 2012Q2

REPORT INFORMATION
  Report Type: 
  Country: None (occurrence: None)
  Receive Date: 20120629
  Receipt Date: 20120625
  Transmission Date: 20120825
  Serious: Yes (Hospitalization, Other)
  Sender: FDA-Public Use
  Company Number: FR-BRISTOL-MYERS SQUIBB COMPANY-16688269

PATIENT
  Age: 88 Year
  Sex: Male

DRUGS (7)
  1. PENTOXIFYLLINE [Concomitant]
  2. PANTOPRAZOLE SODIUM [Concomitant]
  3. ESIDRIX [Concomitant]
  4. SIMVASTATIN [Concomitant]
  5. HYDREA [Suspect]
     Indication: THROMBOCYTOSIS
     Route: 048
  6. DURAGESIC-100 [Concomitant]
  7. NITROGLYCERIN [Concomitant]

REACTIONS (3)
  - SKIN ULCER [None]
  - STASIS DERMATITIS [None]
  - LYMPHOEDEMA [None]
